FAERS Safety Report 8044057-8 (Version None)
Quarter: 2012Q1

REPORT INFORMATION
  Report Type: 
  Country: None (occurrence: None)
  Receive Date: 20120113
  Receipt Date: 20120112
  Transmission Date: 20120608
  Serious: Yes (Hospitalization)
  Sender: FDA-Public Use
  Company Number: IT-JNJFOC-20120102855

PATIENT
  Sex: Female

DRUGS (7)
  1. LIMPIDEX [Concomitant]
  2. OXIVENT [Concomitant]
  3. AMBROMUCIL [Concomitant]
  4. LASIX [Concomitant]
  5. ASPIRIN [Concomitant]
  6. BECLOMETHASONE DIPROPIONATE [Concomitant]
  7. LEVOFLOXACIN [Suspect]
     Indication: INFECTIVE EXACERBATION OF CHRONIC OBSTRUCTIVE AIRWAYS DISEASE
     Route: 048
     Dates: start: 20111220, end: 20111225

REACTIONS (1)
  - EPILEPSY [None]
